FAERS Safety Report 19140680 (Version 1)
Quarter: 2021Q2

REPORT INFORMATION
  Report Type: Spontaneous
  Country: CA (occurrence: CA)
  Receive Date: 20210415
  Receipt Date: 20210415
  Transmission Date: 20210717
  Serious: Yes (Life-Threatening, Other)
  Sender: FDA-Public Use
  Company Number: CA-PFIZER INC-2021376623

PATIENT
  Age: 51 Year
  Sex: Female
  Weight: 125 kg

DRUGS (10)
  1. GRANISETRON [Concomitant]
     Active Substance: GRANISETRON
  2. LEUCOVORIN [CALCIUM FOLINATE] [Concomitant]
     Active Substance: LEUCOVORIN
  3. OLANZAPINE. [Concomitant]
     Active Substance: OLANZAPINE
  4. DEXILANT [Concomitant]
     Active Substance: DEXLANSOPRAZOLE
  5. OXALIPLATIN. [Suspect]
     Active Substance: OXALIPLATIN
     Indication: HEPATIC CANCER
     Dosage: 97.5 UNKNOWN, 1 EVERY 2 WEEKS
     Route: 042
  6. PAROXETINE. [Concomitant]
     Active Substance: PAROXETINE
  7. ENOXAPARIN [Concomitant]
     Active Substance: ENOXAPARIN
  8. PREDNISONE. [Concomitant]
     Active Substance: PREDNISONE
  9. DEXAMETHASONE. [Concomitant]
     Active Substance: DEXAMETHASONE
     Route: 065
  10. FLUOROURACIL. [Concomitant]
     Active Substance: FLUOROURACIL

REACTIONS (6)
  - Malaise [Recovered/Resolved]
  - Nausea [Recovered/Resolved]
  - Vomiting [Recovered/Resolved]
  - Diarrhoea [Recovered/Resolved]
  - Flushing [Recovered/Resolved]
  - Hyperhidrosis [Recovered/Resolved]
